FAERS Safety Report 6137111-9 (Version None)
Quarter: 2009Q1

REPORT INFORMATION
  Report Type: 
  Country: None (occurrence: None)
  Receive Date: 20090326
  Receipt Date: 20090326
  Transmission Date: 20090719
  Serious: Yes (Other)
  Sender: FDA-Public Use
  Company Number: None

PATIENT
  Age: 67 Year
  Sex: Male
  Weight: 97.5234 kg

DRUGS (2)
  1. METOPROLOL TARTRATE [Suspect]
     Indication: MYOCARDIAL INFARCTION
     Dosage: ONCE A DAY
     Dates: start: 20060625, end: 20060819
  2. COLCHICINE [Suspect]
     Indication: GOUT
     Dosage: AS NEEDED
     Dates: start: 20000101, end: 20060901

REACTIONS (7)
  - FATIGUE [None]
  - GAIT DISTURBANCE [None]
  - MUSCULOSKELETAL PAIN [None]
  - MYALGIA [None]
  - NEURALGIA [None]
  - SLEEP DISORDER [None]
  - TENDON PAIN [None]
